FAERS Safety Report 6285100-6 (Version None)
Quarter: 2009Q3

REPORT INFORMATION
  Report Type: 
  Country: None (occurrence: None)
  Receive Date: 20090727
  Receipt Date: 20090720
  Transmission Date: 20100115
  Serious: Yes (Death)
  Sender: FDA-Public Use
  Company Number: GR-BRISTOL-MYERS SQUIBB COMPANY-14522791

PATIENT
  Age: 56 Year
  Sex: Male
  Weight: 75 kg

DRUGS (5)
  1. CETUXIMAB [Suspect]
     Indication: HEAD AND NECK CANCER
     Route: 042
     Dates: start: 20071206, end: 20080206
  2. CISPLATIN [Suspect]
     Indication: HEAD AND NECK CANCER
     Route: 042
     Dates: start: 20071206, end: 20080206
  3. RADIATION THERAPY [Suspect]
     Indication: HEAD AND NECK CANCER
     Dosage: 1 DF = 70GY TO THE TUMOR AREA + 45GY TO THE REST OF THE NECK.
  4. FUSIDIC ACID [Concomitant]
     Indication: DERMATITIS
  5. BETAMETHASONE VALERATE [Concomitant]
     Indication: DERMATITIS
     Route: 003

REACTIONS (1)
  - OESOPHAGEAL VARICES HAEMORRHAGE [None]
